FAERS Safety Report 16051302 (Version 1)
Quarter: 2019Q1

REPORT INFORMATION
  Report Type: Spontaneous
  Country: US (occurrence: US)
  Receive Date: 20190308
  Receipt Date: 20190308
  Transmission Date: 20190418
  Serious: No
  Sender: FDA-Public Use
  Company Number: US-TEVA-2019-US-1011836

PATIENT
  Sex: Female

DRUGS (1)
  1. LOSARTAN HYDROCHLOROTHIAZIDE [Suspect]
     Active Substance: HYDROCHLOROTHIAZIDE\LOSARTAN POTASSIUM
     Route: 065

REACTIONS (5)
  - Headache [Unknown]
  - Constipation [Unknown]
  - Weight increased [Unknown]
  - Dizziness [Unknown]
  - Blood pressure decreased [Unknown]
